FAERS Safety Report 6636682-3 (Version None)
Quarter: 2010Q1

REPORT INFORMATION
  Report Type: 
  Country: None (occurrence: None)
  Receive Date: 20100316
  Receipt Date: 20100308
  Transmission Date: 20100710
  Serious: Yes (Hospitalization)
  Sender: FDA-Public Use
  Company Number: A0850096A

PATIENT
  Age: 72 Year
  Sex: Male
  Weight: 68.2 kg

DRUGS (1)
  1. AVANDIA [Suspect]
     Dosage: 8MG PER DAY
     Route: 048
     Dates: start: 20030101, end: 20080101

REACTIONS (4)
  - COLON CANCER [None]
  - CORONARY ARTERY DISEASE [None]
  - HYPERTENSION [None]
  - RENAL FAILURE [None]
